FAERS Safety Report 11626729 (Version 1)
Quarter: 2015Q4

REPORT INFORMATION
  Report Type: Report from Study
  Country: BR (occurrence: BR)
  Receive Date: 20151013
  Receipt Date: 20151013
  Transmission Date: 20160304
  Serious: Yes (Disabling)
  Sender: FDA-Public Use
  Company Number: BR-ABBVIE-15K-020-1476609-00

PATIENT
  Sex: Female
  Weight: 75 kg

DRUGS (5)
  1. PREDNISONE. [Concomitant]
     Active Substance: PREDNISONE
     Indication: ARTHRITIS
     Route: 048
  2. OSTEONUTRI [Concomitant]
     Indication: PRODUCT USED FOR UNKNOWN INDICATION
     Route: 048
  3. HUMIRA [Suspect]
     Active Substance: ADALIMUMAB
     Indication: RHEUMATOID ARTHRITIS
     Route: 058
     Dates: start: 20130513
  4. METHOTREXATE [Concomitant]
     Active Substance: METHOTREXATE
     Indication: ARTHRITIS
     Route: 048
  5. ENALAPRIL [Concomitant]
     Active Substance: ENALAPRIL
     Indication: HYPERTENSION
     Route: 048

REACTIONS (11)
  - Deafness [Unknown]
  - Influenza [Recovered/Resolved]
  - Pharyngeal disorder [Recovered/Resolved]
  - Arthralgia [Recovering/Resolving]
  - Memory impairment [Unknown]
  - Muscular weakness [Recovering/Resolving]
  - Bradyphrenia [Unknown]
  - Depressed mood [Unknown]
  - Gait disturbance [Recovering/Resolving]
  - Drug effect incomplete [Unknown]
  - Dysphagia [Recovered/Resolved]
